FAERS Safety Report 7900389-2 (Version None)
Quarter: 2011Q4

REPORT INFORMATION
  Report Type: 
  Country: None (occurrence: None)
  Receive Date: 20111108
  Receipt Date: 20111103
  Transmission Date: 20120403
  Serious: No
  Sender: FDA-Public Use
  Company Number: US-PFIZER INC-2011269058

PATIENT
  Sex: Male

DRUGS (1)
  1. EFFEXOR [Suspect]
     Dosage: 75-MG TABLET (CUT IN HALF, HALF IN THE MORNING, HALF IN THE EVENING)
     Dates: start: 20111024

REACTIONS (8)
  - MUSCLE TIGHTNESS [None]
  - MALAISE [None]
  - ANXIETY [None]
  - INSOMNIA [None]
  - EMOTIONAL DISORDER [None]
  - HYPOAESTHESIA [None]
  - RESTLESSNESS [None]
  - TENSION HEADACHE [None]
